FAERS Safety Report 9760699 (Version 1)
Quarter: 2013Q4

REPORT INFORMATION
  Report Type: Spontaneous
  Country: US (occurrence: US)
  Receive Date: 20131216
  Receipt Date: 20131216
  Transmission Date: 20140711
  Serious: Yes (Other)
  Sender: FDA-Public Use
  Company Number: US-TEVA-450501USA

PATIENT
  Age: 36 Year
  Sex: Male

DRUGS (11)
  1. DAUNORUBICIN [Suspect]
     Indication: ACUTE LYMPHOCYTIC LEUKAEMIA
     Dosage: ON D1, 8, 15, 22 SCHEDULED; CALGB 10403 PROTOCOL
     Route: 042
  2. VINCRISTINE [Suspect]
     Indication: ACUTE LYMPHOCYTIC LEUKAEMIA
     Dosage: ON D1, 8, 15, 22 SCHEDULED; CALGB 10403 PROTOCOL
     Route: 042
  3. PREDNISONE [Suspect]
     Indication: ACUTE LYMPHOCYTIC LEUKAEMIA
     Dosage: ON D1-28 SCHEDULED; CALGB 10403 PROTOCOL
     Route: 048
  4. PEGASPARGASE [Suspect]
     Indication: ACUTE LYMPHOCYTIC LEUKAEMIA
     Dosage: 5225IU ON D4; CALGB 10403 PROTOCOL
     Route: 042
  5. ALLOPURINOL [Concomitant]
     Indication: ACUTE LYMPHOCYTIC LEUKAEMIA
     Dosage: ON D1-28 SCHEDULED; CALGB 10403 PROTOCOL
     Route: 048
  6. CYTARABINE [Concomitant]
     Indication: ACUTE LYMPHOCYTIC LEUKAEMIA
     Dosage: ON D1; CALGB 10403 PROTOCOL
     Route: 037
  7. METHOTREXATE [Concomitant]
     Indication: ACUTE LYMPHOCYTIC LEUKAEMIA
     Dosage: ON D8, 29 SCHEDULED; CALGB 10403 PROTOCOL
     Route: 037
  8. HEPARIN [Concomitant]
     Indication: MYOCARDIAL INFARCTION
     Route: 041
  9. METOPROLOL [Concomitant]
     Indication: MYOCARDIAL INFARCTION
     Route: 065
  10. ROSUVASTATIN [Concomitant]
     Indication: MYOCARDIAL INFARCTION
     Route: 065
  11. ASPIRIN [Concomitant]
     Indication: MYOCARDIAL INFARCTION
     Dosage: ON D10
     Route: 065

REACTIONS (1)
  - Acute myocardial infarction [Recovering/Resolving]
